FAERS Safety Report 5218102-9 (Version None)
Quarter: 2007Q1

REPORT INFORMATION
  Report Type: 
  Country: None (occurrence: None)
  Receive Date: 20070124
  Receipt Date: 20070112
  Transmission Date: 20070707
  Serious: Yes (Death)
  Sender: FDA-Public Use
  Company Number: KR-PFIZER INC-2006118047

PATIENT
  Sex: Male
  Weight: 54 kg

DRUGS (7)
  1. VFEND [Suspect]
     Indication: SEPSIS
     Route: 042
     Dates: start: 20060325, end: 20060409
  2. VFEND [Suspect]
     Route: 048
     Dates: start: 20060328, end: 20060409
  3. ASTHCONTIN [Concomitant]
     Indication: DYSPNOEA
     Route: 048
     Dates: start: 20060126, end: 20060409
  4. NORVASC [Concomitant]
     Indication: HYPERTENSION
     Route: 048
     Dates: start: 20060126, end: 20060409
  5. ZANTAC [Concomitant]
     Indication: PROPHYLAXIS AGAINST GASTROINTESTINAL ULCER
     Route: 048
     Dates: start: 20060126, end: 20060409
  6. ALL OTHER THERAPEUTIC PRODUCTS [Concomitant]
     Indication: ANOREXIA
     Route: 048
     Dates: start: 20060324, end: 20060409
  7. PREDNISONE TAB [Concomitant]
     Indication: BRONCHITIS
     Dosage: DAILY DOSE:5MG
     Route: 048
     Dates: start: 20060210, end: 20060409

REACTIONS (1)
  - SEPTIC SHOCK [None]
